FAERS Safety Report 14283829 (Version 1)
Quarter: 2017Q4

REPORT INFORMATION
  Report Type: Spontaneous
  Country: US (occurrence: US)
  Receive Date: 20171213
  Receipt Date: 20171213
  Transmission Date: 20180321
  Serious: No
  Sender: FDA-Public Use
  Company Number: None

PATIENT
  Age: 72 Year
  Sex: Female
  Weight: 83.25 kg

DRUGS (16)
  1. MEPHYTON [Concomitant]
     Active Substance: PHYTONADIONE
  2. RAMIPRIL. [Concomitant]
     Active Substance: RAMIPRIL
  3. VITAMIN D3 [Concomitant]
     Active Substance: CHOLECALCIFEROL
  4. NERVE RENEW [Concomitant]
     Active Substance: DIETARY SUPPLEMENT
  5. CLARITHROMYCIN EXTENDED RELEASE [Concomitant]
     Active Substance: CLARITHROMYCIN
  6. PREDNISONE. [Concomitant]
     Active Substance: PREDNISONE
  7. FOCALIN XR [Concomitant]
     Active Substance: DEXMETHYLPHENIDATE HYDROCHLORIDE
  8. MYRBETRIQ [Concomitant]
     Active Substance: MIRABEGRON
  9. OMEGA Q PLUS [Concomitant]
  10. MAGNESIUM [Concomitant]
     Active Substance: MAGNESIUM
  11. LOTEMAX [Suspect]
     Active Substance: LOTEPREDNOL ETABONATE
     Indication: INFLAMMATION
     Dosage: ?          QUANTITY:1 DROP(S);?
     Route: 047
  12. LOTEMAX [Suspect]
     Active Substance: LOTEPREDNOL ETABONATE
     Indication: CONJUNCTIVITIS BACTERIAL
     Dosage: ?          QUANTITY:1 DROP(S);?
     Route: 047
  13. ATENOLOL. [Concomitant]
     Active Substance: ATENOLOL
  14. PROBIOTIC [Concomitant]
     Active Substance: PROBIOTICS NOS
  15. VITAMIN C [Concomitant]
     Active Substance: ASCORBIC ACID
  16. GAMMAGARD [Concomitant]
     Active Substance: HUMAN IMMUNOGLOBULIN G

REACTIONS (5)
  - Pain [None]
  - Eye irritation [None]
  - Eyelid oedema [None]
  - Sensation of foreign body [None]
  - Blepharitis [None]

NARRATIVE: CASE EVENT DATE: 20171121
